FAERS Safety Report 4430955-0 (Version None)
Quarter: 2004Q3

REPORT INFORMATION
  Report Type: 
  Country: None (occurrence: None)
  Receive Date: 20040824
  Receipt Date: 20040803
  Transmission Date: 20050211
  Serious: Yes (Hospitalization)
  Sender: FDA-Public Use
  Company Number: PHEH2004US08417

PATIENT
  Age: 68 Year
  Sex: Female
  Weight: 83 kg

DRUGS (5)
  1. GLEEVEC [Suspect]
     Indication: CHRONIC MYELOID LEUKAEMIA
     Dosage: 400 MG, QD
     Route: 048
     Dates: start: 20011224
  2. GLEEVEC [Suspect]
     Dosage: 300 MG, QD
     Route: 048
  3. NORMODYNE [Concomitant]
     Indication: HYPERTENSION
     Route: 048
     Dates: start: 20000101
  4. COZAAR [Concomitant]
     Indication: HYPERTENSION
  5. DIURETICS [Concomitant]
     Indication: HYPERTENSION

REACTIONS (2)
  - RENAL HAEMORRHAGE [None]
  - RETROPERITONEAL HAEMORRHAGE [None]
